FAERS Safety Report 7510655-0 (Version None)
Quarter: 2011Q2

REPORT INFORMATION
  Report Type: 
  Country: None (occurrence: None)
  Receive Date: 20110530
  Receipt Date: 20110526
  Transmission Date: 20111010
  Serious: Yes (Hospitalization, Disabling)
  Sender: FDA-Public Use
  Company Number: US-AMGEN-USACT2011019512

PATIENT
  Age: 74 Year
  Sex: Female

DRUGS (18)
  1. DENOSUMAB [Suspect]
     Indication: OSTEOPOROSIS POSTMENOPAUSAL
     Dosage: 60 MG, Q6MO
     Route: 058
     Dates: start: 20061206, end: 20100614
  2. ESTER C [Concomitant]
     Dosage: 500 MG, QD
  3. LISINOPRIL [Concomitant]
     Dosage: 10 MG, BID
     Dates: start: 20110301
  4. SENOKOT [Concomitant]
  5. CHANTIX [Concomitant]
     Dosage: 0.5 MG, BID
  6. FERROUS SULFATE TAB [Concomitant]
     Dosage: 27 MG, QD
  7. FLUTICASONE PROPIONATE [Concomitant]
     Dosage: 50 A?G, PRN
     Route: 055
  8. CHERATUSSIN AC [Concomitant]
     Dosage: UNK UNK, PRN
  9. SPIRIVA [Concomitant]
     Dosage: 18 A?G, QD
  10. VITAMIN B COMPLEX CAP [Concomitant]
  11. VITAMIN D [Concomitant]
     Dosage: 400 IU, QD
  12. ATIVAN [Concomitant]
  13. PERCOCET [Concomitant]
     Dosage: 325 MG, PRN
     Route: 048
  14. HYDRALAZINE HCL [Concomitant]
     Dosage: 10 MG, Q6H
  15. OSCAL [Concomitant]
     Dosage: 1000 MG, QD
  16. ALLEGRA [Concomitant]
     Dosage: 180 MG, QD
  17. DIFLUCAN [Concomitant]
  18. PRILOSEC [Concomitant]
     Dosage: 20 MG, UNK

REACTIONS (1)
  - SPINAL COMPRESSION FRACTURE [None]
